FAERS Safety Report 6397973-7 (Version None)
Quarter: 2009Q4

REPORT INFORMATION
  Report Type: 
  Country: None (occurrence: None)
  Receive Date: 20091013
  Receipt Date: 20091001
  Transmission Date: 20100525
  Serious: Yes (Congenital Anomaly)
  Sender: FDA-Public Use
  Company Number: GB-JNJFOC-20091003080

PATIENT

DRUGS (7)
  1. REMICADE [Suspect]
     Indication: DRUG EXPOSURE DURING PREGNANCY
  2. PREDNISOLONE [Concomitant]
     Indication: DRUG EXPOSURE DURING PREGNANCY
  3. CALCIUM CHEWABLE [Concomitant]
     Indication: DRUG EXPOSURE DURING PREGNANCY
  4. CIMETIDINE [Concomitant]
     Indication: DRUG EXPOSURE DURING PREGNANCY
  5. ACETAMINOPHEN WITH PROPOXYPHENE HCL TAB [Concomitant]
     Indication: DRUG EXPOSURE DURING PREGNANCY
  6. DICLOFENAC [Concomitant]
     Indication: DRUG EXPOSURE DURING PREGNANCY
  7. ORAL CONTRACEPTIVE PILL [Concomitant]
     Indication: DRUG EXPOSURE DURING PREGNANCY

REACTIONS (1)
  - TRISOMY 21 [None]
